FAERS Safety Report 18386129 (Version 2)
Quarter: 2020Q4

REPORT INFORMATION
  Report Type: Spontaneous
  Country: JP (occurrence: JP)
  Receive Date: 20201015
  Receipt Date: 20201228
  Transmission Date: 20210114
  Serious: Yes (Life-Threatening, Hospitalization, Other)
  Sender: FDA-Public Use
  Company Number: JP-ACCORD-205150

PATIENT
  Age: 71 Year
  Sex: Male

DRUGS (8)
  1. QUETIAPINE. [Suspect]
     Active Substance: QUETIAPINE
     Indication: DELIRIUM
  2. LANTHANUM CARBONATE. [Concomitant]
     Active Substance: LANTHANUM CARBONATE
  3. FEBUXOSTAT. [Concomitant]
     Active Substance: FEBUXOSTAT
  4. EVOCALCET [Concomitant]
     Active Substance: EVOCALCET
  5. HEPARIN [Concomitant]
     Active Substance: HEPARIN SODIUM
  6. OLMESARTAN/OLMESARTAN MEDOXOMIL [Concomitant]
     Active Substance: OLMESARTAN MEDOXOMIL
  7. NALFURAFINE [Concomitant]
  8. FERRIC CITRATE [Concomitant]
     Active Substance: TETRAFERRIC TRICITRATE DECAHYDRATE

REACTIONS (1)
  - Thrombotic microangiopathy [Recovered/Resolved]
